FAERS Safety Report 4526739-5 (Version None)
Quarter: 2004Q4

REPORT INFORMATION
  Report Type: 
  Country: None (occurrence: None)
  Receive Date: 20041213
  Receipt Date: 20041201
  Transmission Date: 20050328
  Serious: Yes (Other)
  Sender: FDA-Public Use
  Company Number: 2004100988

PATIENT
  Age: 64 Year
  Sex: Female

DRUGS (1)
  1. NORVASC [Suspect]
     Indication: HYPERTENSION
     Dosage: 10 MG (10 MG, 1 IN 1 D), ORAL
     Route: 048

REACTIONS (7)
  - CONTUSION [None]
  - FALL [None]
  - FATIGUE [None]
  - FLUID RETENTION [None]
  - JOINT INJURY [None]
  - LOWER LIMB FRACTURE [None]
  - WEIGHT INCREASED [None]
